FAERS Safety Report 7071152-2 (Version None)
Quarter: 2010Q4

REPORT INFORMATION
  Report Type: 
  Country: None (occurrence: None)
  Receive Date: 20101029
  Receipt Date: 20101020
  Transmission Date: 20110411
  Serious: No
  Sender: FDA-Public Use
  Company Number: US-PFIZER INC-2010134702

PATIENT
  Age: 24 Month
  Sex: Male

DRUGS (2)
  1. SILDENAFIL CITRATE [Suspect]
     Indication: PULMONARY ARTERIAL HYPERTENSION
     Dosage: 20MG 3X/DAY,
  2. SILDENAFIL CITRATE [Suspect]
     Dosage: 40 MG, 3X/DAY

REACTIONS (1)
  - PAIN IN EXTREMITY [None]
